FAERS Safety Report 7023214-3 (Version None)
Quarter: 2010Q3

REPORT INFORMATION
  Report Type: 
  Country: None (occurrence: None)
  Receive Date: 20100916
  Receipt Date: 20100527
  Transmission Date: 20110219
  Serious: No
  Sender: FDA-Public Use
  Company Number: DKLU1062502

PATIENT
  Age: 19 Month

DRUGS (1)
  1. SABRIL [Suspect]
     Indication: ACCIDENTAL EXPOSURE
     Dosage: 1 ML MILLILITRE(S), ONCE, ORAL
     Route: 048
     Dates: start: 20100527, end: 20100527

REACTIONS (1)
  - ACCIDENTAL EXPOSURE [None]
